FAERS Safety Report 10239678 (Version 1)
Quarter: 2014Q2

REPORT INFORMATION
  Report Type: Spontaneous
  Country: JP (occurrence: JP)
  Receive Date: 20140616
  Receipt Date: 20140616
  Transmission Date: 20141212
  Serious: Yes (Death)
  Sender: FDA-Public Use
  Company Number: JP-B.I. PHARMACEUTICALS,INC./RIDGEFIELD-2014-BI-27063NB

PATIENT
  Age: 70 Year
  Sex: Female

DRUGS (1)
  1. GIOTRIF [Suspect]
     Indication: NON-SMALL CELL LUNG CANCER
     Dosage: 40 MG
     Route: 048
     Dates: start: 20140602, end: 20140609

REACTIONS (1)
  - Non-small cell lung cancer [Fatal]
